FAERS Safety Report 5690009-2 (Version None)
Quarter: 2008Q2

REPORT INFORMATION
  Report Type: 
  Country: None (occurrence: None)
  Receive Date: 20080401
  Receipt Date: 20080118
  Transmission Date: 20081010
  Serious: No
  Sender: FDA-Public Use
  Company Number: A0705228A

PATIENT
  Sex: Female

DRUGS (2)
  1. FLONASE [Suspect]
     Indication: MULTIPLE ALLERGIES
     Route: 045
  2. CLARITIN-D [Suspect]
     Indication: MULTIPLE ALLERGIES
     Route: 048

REACTIONS (3)
  - COUGH [None]
  - DRY MOUTH [None]
  - SINUS HEADACHE [None]
